FAERS Safety Report 5460639-1 (Version None)
Quarter: 2007Q3

REPORT INFORMATION
  Report Type: 
  Country: None (occurrence: None)
  Receive Date: 20070919
  Receipt Date: 20070912
  Transmission Date: 20080115
  Serious: Yes (Other)
  Sender: FDA-Public Use
  Company Number: AU-PFIZER INC-2007077094

PATIENT
  Sex: Female

DRUGS (2)
  1. SALAZOPYRIN [Suspect]
     Dosage: FREQ:3 TABLETS OVER A WEEK
  2. METHOTREXATE SODIUM [Interacting]

REACTIONS (1)
  - SCLERODERMA [None]
